FAERS Safety Report 9415164 (Version 1)
Quarter: 2013Q3

REPORT INFORMATION
  Report Type: Spontaneous
  Country: ES (occurrence: ES)
  Receive Date: 20130723
  Receipt Date: 20130723
  Transmission Date: 20140515
  Serious: Yes (Other)
  Sender: FDA-Public Use
  Company Number: PHHY2013ES076693

PATIENT
  Age: 79 Year
  Sex: Male

DRUGS (8)
  1. GLIVEC [Suspect]
     Indication: CHRONIC MYELOID LEUKAEMIA
     Dosage: 400 MG, PER DAY
     Dates: start: 200206
  2. GLIVEC [Suspect]
     Dosage: 600 MG, PER DAY
     Dates: start: 200406
  3. GLIVEC [Suspect]
     Dosage: 400 MG, PER DAY
     Dates: start: 200701
  4. GLIVEC [Suspect]
     Dosage: 600 MG, PER DAY
     Dates: start: 20070525
  5. GLIVEC [Suspect]
     Dosage: 400 MG, PER DAY
     Dates: start: 200709
  6. GLIVEC [Suspect]
     Dosage: 600 MG, PER DAY
     Dates: start: 20080206, end: 20080327
  7. RAMIPRIL [Concomitant]
     Dosage: 5 MG, QD
  8. COSOPT [Concomitant]
     Dosage: UNK UKN, BID

REACTIONS (12)
  - Prostate cancer [Recovered/Resolved]
  - Second primary malignancy [Unknown]
  - Mitral valve incompetence [Unknown]
  - Proctitis [Unknown]
  - Rectal haemorrhage [Unknown]
  - Subdural haematoma [Unknown]
  - Neoplasm recurrence [Unknown]
  - Drug intolerance [Unknown]
  - Gastrointestinal toxicity [Unknown]
  - Diarrhoea [Unknown]
  - Vomiting [Unknown]
  - Therapeutic response decreased [Unknown]
